FAERS Safety Report 6086996-3 (Version None)
Quarter: 2009Q1

REPORT INFORMATION
  Report Type: 
  Country: None (occurrence: None)
  Receive Date: 20090217
  Receipt Date: 20080605
  Transmission Date: 20090719
  Serious: Yes (Hospitalization, Other)
  Sender: FDA-Public Use
  Company Number: MC200800239

PATIENT
  Sex: Male

DRUGS (2)
  1. ANGIOMAX [Suspect]
     Indication: CORONARY ARTERY BYPASS
     Dosage: BOLUS, INTRAVENOUS; INTRAVENOUS
     Route: 040
     Dates: start: 20060101, end: 20060101
  2. ANGIOMAX [Suspect]
     Indication: CORONARY ARTERY BYPASS
     Dosage: BOLUS, INTRAVENOUS; INTRAVENOUS
     Route: 040
     Dates: start: 20060101, end: 20060101

REACTIONS (2)
  - HAEMORRHAGE [None]
  - OVERDOSE [None]
